FAERS Safety Report 5301059-X (Version None)
Quarter: 2007Q2

REPORT INFORMATION
  Report Type: 
  Country: None (occurrence: None)
  Receive Date: 20070411
  Receipt Date: 20070328
  Transmission Date: 20071010
  Serious: Yes (Other)
  Sender: FDA-Public Use
  Company Number: 2007RR-06622

PATIENT
  Age: 27 Year
  Sex: Male

DRUGS (8)
  1. LAMIVUDINE [Suspect]
     Indication: HIV INFECTION
  2. ABACAVIR [Suspect]
     Indication: HIV INFECTION
  3. ZIDOVUDINE [Suspect]
     Indication: HIV INFECTION
  4. ISONIAZID [Concomitant]
  5. RIFAMPICIN [Concomitant]
  6. ETHAMBUTOL HYDROCHLORIDE [Concomitant]
  7. PYRAZINAMIDE [Concomitant]
  8. PREDNISOLONE [Concomitant]

REACTIONS (1)
  - IMMUNE RECONSTITUTION SYNDROME [None]
